FAERS Safety Report 5690544-7 (Version None)
Quarter: 2008Q1

REPORT INFORMATION
  Report Type: 
  Country: None (occurrence: None)
  Receive Date: 20080331
  Receipt Date: 20080331
  Transmission Date: 20080703
  Serious: No
  Sender: FDA-Public Use
  Company Number: None

PATIENT
  Sex: Female
  Weight: 79.3795 kg

DRUGS (1)
  1. SINGULAIR [Suspect]
     Indication: ASTHMA
     Dosage: 10MG 1QHS PO STILL USING
     Route: 048
     Dates: start: 20020601, end: 20080328

REACTIONS (3)
  - ANXIETY [None]
  - MOOD ALTERED [None]
  - SEASONAL AFFECTIVE DISORDER [None]
